FAERS Safety Report 24197552 (Version 1)
Quarter: 2024Q3

REPORT INFORMATION
  Report Type: Spontaneous
  Country: GB (occurrence: GB)
  Receive Date: 20240811
  Receipt Date: 20240811
  Transmission Date: 20241016
  Serious: Yes (Other)
  Sender: TEVA
  Company Number: None

PATIENT
  Age: 36 Year
  Sex: Female

DRUGS (16)
  1. CISPLATIN [Suspect]
     Active Substance: CISPLATIN
     Dosage: TAKEN WITH CERVICAL RADIOTHERAPY
     Route: 065
  2. ONDANSETRON [Concomitant]
     Active Substance: ONDANSETRON
     Dosage: TWICE A DAY, AS NECESSARY POST CHEMO
     Route: 065
  3. METRONIDAZOLE [Concomitant]
     Active Substance: METRONIDAZOLE
     Dates: start: 20240208, end: 20240215
  4. TRANEXAMIC ACID [Concomitant]
     Active Substance: TRANEXAMIC ACID
     Route: 048
  5. DOCUSATE [Concomitant]
     Active Substance: DOCUSATE
     Route: 048
  6. LACTULOSE [Concomitant]
     Active Substance: LACTULOSE
     Dosage: 3.1-3.7G PER  5ML
     Route: 048
  7. MORPHINE SULFATE [Concomitant]
     Active Substance: MORPHINE SULFATE
     Route: 048
  8. FERROUS SULFATE [Concomitant]
     Active Substance: FERROUS SULFATE
     Route: 048
     Dates: start: 20240111
  9. FERROUS FUMARATE [Concomitant]
     Active Substance: FERROUS FUMARATE
     Route: 048
  10. CYCLIZINE [Concomitant]
     Active Substance: CYCLIZINE
     Route: 048
  11. MORPHINE SULFATE [Concomitant]
     Active Substance: MORPHINE SULFATE
     Indication: Pain
     Dosage: 10 MG / 5 ML ORAL SOLUTION 2.5-5 ML ( 5-10 MG) EVERY 3 HOURS WHEN REQUIRED FOR PAIN 300 ML- TO TA...
     Route: 048
     Dates: start: 20240308
  12. CODEINE [Concomitant]
     Active Substance: CODEINE
     Dosage: TWO TO BE TAKEN THREE TIMES A DAY AS NECESSARY
     Route: 048
     Dates: start: 20240125
  13. NEFOPAM [Concomitant]
     Active Substance: NEFOPAM
     Dosage: ONE TO BE TAKEN EVERY SIX HOURS AS NECESSARY
     Route: 048
     Dates: end: 20240125
  14. DICLOFENAC [Concomitant]
     Active Substance: DICLOFENAC
     Dosage: TAKING AS NECESSARY AT NIGHT
     Route: 054
  15. METOCLOPRAMIDE [Concomitant]
     Active Substance: METOCLOPRAMIDE
     Dosage: 10MG THREE TIMES A DAY AS NECESSARY POST CHEMO
  16. SENNA [Concomitant]
     Active Substance: SENNA LEAF\SENNOSIDES\SENNOSIDES A AND B
     Dosage: AT NIGHT
     Route: 048

REACTIONS (1)
  - Acute kidney injury [Unknown]
